FAERS Safety Report 26121334 (Version 1)
Quarter: 2025Q4

REPORT INFORMATION
  Report Type: Spontaneous
  Country: US (occurrence: None)
  Receive Date: 20251203
  Receipt Date: 20251203
  Transmission Date: 20260117
  Serious: Yes (Hospitalization)
  Sender: FDA-CTU
  Company Number: None

PATIENT
  Age: 33 Year
  Sex: Female
  Weight: 53 kg

DRUGS (1)
  1. OMNIPAQUE [Suspect]
     Active Substance: IOHEXOL
     Dosage: OTHER FREQUENCY : ONCE;?
     Route: 042

REACTIONS (8)
  - Contrast media reaction [None]
  - Rash [None]
  - Rash [None]
  - Chest pain [None]
  - Heart rate increased [None]
  - Dyspnoea [None]
  - Dizziness [None]
  - Syncope [None]

NARRATIVE: CASE EVENT DATE: 20251121
